FAERS Safety Report 12525976 (Version 1)
Quarter: 2016Q3

REPORT INFORMATION
  Report Type: Spontaneous
  Country: US (occurrence: None)
  Receive Date: 20160701
  Receipt Date: 20160701
  Transmission Date: 20161109
  Serious: No
  Sender: FDA-Public Use
  Company Number: None

PATIENT
  Age: 55 Year
  Sex: Male

DRUGS (3)
  1. RIBAVIRIN TAB 200 MG [Suspect]
     Active Substance: RIBAVIRIN
     Indication: PRODUCT USED FOR UNKNOWN INDICATION
  2. SOVALDI [Suspect]
     Active Substance: SOFOSBUVIR
  3. DAKLINZA [Suspect]
     Active Substance: DACLATASVIR

REACTIONS (2)
  - Nausea [None]
  - Amnesia [None]

NARRATIVE: CASE EVENT DATE: 20160621
